FAERS Safety Report 4449556-3 (Version None)
Quarter: 2004Q3

REPORT INFORMATION
  Report Type: 
  Country: None (occurrence: None)
  Receive Date: 20040913
  Receipt Date: 20040827
  Transmission Date: 20050211
  Serious: Yes (Hospitalization)
  Sender: FDA-Public Use
  Company Number: 04P-083-0271847-00

PATIENT
  Age: 66 Year
  Sex: Female

DRUGS (4)
  1. BIAXIN [Suspect]
     Indication: PROPHYLAXIS
     Dosage: 1000 MG, 1 IN 1 D, PER ORAL
     Route: 048
     Dates: start: 20040724, end: 20040727
  2. CALCIUM [Concomitant]
  3. ERGOCALCIFEROL [Concomitant]
  4. RISEDRONATE SODIUM [Concomitant]

REACTIONS (3)
  - CONFUSIONAL STATE [None]
  - DELIRIUM [None]
  - PSYCHOMOTOR AGITATION [None]
